FAERS Safety Report 6620213-8 (Version None)
Quarter: 2010Q1

REPORT INFORMATION
  Report Type: 
  Country: None (occurrence: None)
  Receive Date: 20100308
  Receipt Date: 20100308
  Transmission Date: 20100710
  Serious: Yes (Other)
  Sender: FDA-Public Use
  Company Number: None

PATIENT
  Age: 43 Year
  Sex: Male
  Weight: 65.7716 kg

DRUGS (5)
  1. SAPHRIS [Suspect]
     Indication: NERVOUS SYSTEM DISORDER
     Dosage: 10 MG TRIED ONCE ORAL (USED ONCE)
     Route: 048
  2. SAPHRIS [Suspect]
     Indication: SCHIZOPHRENIA
     Dosage: 10 MG TRIED ONCE ORAL (USED ONCE)
     Route: 048
  3. SEROQUEL [Concomitant]
  4. NEURONTIN [Concomitant]
  5. KLONOPIN [Concomitant]

REACTIONS (2)
  - ANXIETY [None]
  - IMMOBILE [None]
